FAERS Safety Report 6908578-0 (Version None)
Quarter: 2010Q3

REPORT INFORMATION
  Report Type: 
  Country: None (occurrence: None)
  Receive Date: 20100805
  Receipt Date: 20100723
  Transmission Date: 20110219
  Serious: Yes (Hospitalization)
  Sender: FDA-Public Use
  Company Number: FR-NAPPMUNDI-GBR-2010-0006720

PATIENT
  Sex: Female

DRUGS (9)
  1. OXYNORM INJECTION 10MG/ML [Suspect]
     Indication: CANCER PAIN
     Dosage: 150 MG, DAILY
     Route: 042
     Dates: start: 20091102
  2. NOVOMIX                            /01475801/ [Suspect]
     Indication: DIABETES MELLITUS
     Dosage: 34IU, DAILY
     Route: 058
     Dates: start: 20091102, end: 20091103
  3. NOVOMIX                            /01475801/ [Suspect]
     Dosage: 10 IU, BID
     Route: 058
     Dates: start: 20091103
  4. FLUCONAZOLE [Suspect]
     Indication: CANDIDIASIS
     Dosage: 50 MG, BID
     Route: 048
     Dates: start: 20091102, end: 20091103
  5. AMITRIPTYLINE HCL [Suspect]
     Indication: NEURALGIA
     Dosage: 50 MG, DAILY
     Route: 048
     Dates: start: 20091031
  6. CLONAZEPAM [Suspect]
     Indication: NEURALGIA
     Dosage: UNK
     Route: 048
     Dates: start: 20091102, end: 20091103
  7. FUNGIZONE [Concomitant]
     Indication: CANDIDIASIS
     Dosage: 5 ML, TID
     Route: 048
     Dates: start: 20091022, end: 20091103
  8. LYRICA [Concomitant]
     Indication: NEURALGIA
     Dosage: 150 MG, BID
     Route: 048
     Dates: start: 20091024
  9. SOLUPRED                           /00016209/ [Concomitant]
     Indication: NEURALGIA
     Dosage: 20 MG, UNK
     Route: 048
     Dates: start: 20091031

REACTIONS (1)
  - HYPOGLYCAEMIA [None]
